FAERS Safety Report 6736238-8 (Version None)
Quarter: 2010Q2

REPORT INFORMATION
  Report Type: 
  Country: None (occurrence: None)
  Receive Date: 20100521
  Receipt Date: 20100510
  Transmission Date: 20101027
  Serious: Yes (Death, Other)
  Sender: FDA-Public Use
  Company Number: GB-GENZYME-CLOF-1000950

PATIENT
  Age: 67 Week
  Sex: Male

DRUGS (4)
  1. EVOLTRA [Suspect]
     Indication: ACUTE LEUKAEMIA
     Dosage: 20 MG/M2, UNK
     Route: 042
     Dates: start: 20080715
  2. EVOLTRA [Suspect]
     Dosage: 20 MG/M2, UNK
     Route: 042
     Dates: end: 20080812
  3. DAUNORUBICIN HCL [Suspect]
     Indication: ACUTE LEUKAEMIA
     Dosage: 50 MG/M2, QD
     Route: 042
     Dates: start: 20080715
  4. DAUNORUBICIN HCL [Suspect]
     Dosage: 50 MG/M2, UNK
     Route: 042
     Dates: end: 20080812

REACTIONS (4)
  - FEBRILE NEUTROPENIA [None]
  - LEUKAEMIA RECURRENT [None]
  - PSEUDOMONAS TEST POSITIVE [None]
  - THROMBOCYTOPENIA [None]
